FAERS Safety Report 10668883 (Version 5)
Quarter: 2015Q3

REPORT INFORMATION
  Report Type: Spontaneous
  Country: JP (occurrence: JP)
  Receive Date: 20141222
  Receipt Date: 20150720
  Transmission Date: 20151125
  Serious: Yes (Hospitalization, Other)
  Sender: FDA-Public Use
  Company Number: JP-CELGENE-087-21880-12121862

PATIENT
  Age: 76 Year
  Sex: Male
  Weight: 58.4 kg

DRUGS (86)
  1. SULFAMETHOXAZOLE-TRIMETHOPRIM (SMZ) [Concomitant]
     Active Substance: SULFAMETHOXAZOLE\TRIMETHOPRIM
     Indication: PRODUCT USED FOR UNKNOWN INDICATION
     Route: 065
     Dates: start: 20111222
  2. PL GRANULE [Concomitant]
     Route: 065
     Dates: start: 20120910, end: 20120919
  3. PL GRANULE [Concomitant]
     Route: 065
     Dates: start: 20141204, end: 20141210
  4. L-CARBOCISTEINE [Concomitant]
     Active Substance: CARBOCYSTEINE
     Route: 065
     Dates: start: 20131108, end: 20131121
  5. SENNOSIDE [Concomitant]
     Active Substance: SENNOSIDES
     Route: 065
     Dates: start: 20140331, end: 20140331
  6. SENNOSIDE [Concomitant]
     Active Substance: SENNOSIDES
     Route: 065
     Dates: start: 20150109
  7. METOCLOPRAMIDE. [Concomitant]
     Active Substance: METOCLOPRAMIDE
     Route: 065
     Dates: start: 20130614, end: 20130614
  8. LIRANAFTATE [Concomitant]
     Indication: ADVERSE EVENT
     Route: 065
     Dates: start: 20130531, end: 20130711
  9. TULOBUTEROL [Concomitant]
     Active Substance: TULOBUTEROL
     Indication: ADVERSE EVENT
     Route: 065
     Dates: start: 20130822, end: 20130829
  10. EYE BON TORORI EYE-DROP (FOR EYE DISCHARGE) [Concomitant]
     Indication: ADVERSE EVENT
     Route: 047
     Dates: start: 20130913, end: 20131128
  11. CLARITHROMYCIN. [Concomitant]
     Active Substance: CLARITHROMYCIN
     Indication: ADVERSE EVENT
     Route: 065
     Dates: start: 20140522, end: 20140528
  12. DIPHENHYDRAMINE HYDROCHLORIDE. [Concomitant]
     Active Substance: DIPHENHYDRAMINE HYDROCHLORIDE
     Indication: PRODUCT USED FOR UNKNOWN INDICATION
     Route: 065
     Dates: start: 20141120, end: 20141120
  13. RANITIDINE HYDROCHLORIDE. [Concomitant]
     Active Substance: RANITIDINE HYDROCHLORIDE
     Indication: PRODUCT USED FOR UNKNOWN INDICATION
     Route: 065
     Dates: start: 20141120, end: 20141120
  14. SENNA LEAF [Concomitant]
     Active Substance: SENNA LEAF
     Indication: PRODUCT USED FOR UNKNOWN INDICATION
     Route: 065
     Dates: start: 20111226, end: 20111230
  15. SENNA LEAF [Concomitant]
     Active Substance: SENNA LEAF
     Route: 065
     Dates: start: 20120104, end: 20120525
  16. SENNA LEAF [Concomitant]
     Active Substance: SENNA LEAF
     Route: 065
     Dates: start: 20120601, end: 20130102
  17. L-CARBOCISTEINE [Concomitant]
     Active Substance: CARBOCYSTEINE
     Route: 065
     Dates: start: 20130822, end: 20130829
  18. METOCLOPRAMIDE. [Concomitant]
     Active Substance: METOCLOPRAMIDE
     Indication: PRODUCT USED FOR UNKNOWN INDICATION
     Route: 065
     Dates: start: 20111207, end: 20140401
  19. METOCLOPRAMIDE. [Concomitant]
     Active Substance: METOCLOPRAMIDE
     Route: 065
     Dates: start: 20140401, end: 20140401
  20. LEVOFLOXACIN HEMIHYDRATE [Concomitant]
     Active Substance: LEVOFLOXACIN
     Route: 065
     Dates: start: 20141205, end: 20141210
  21. LEVOFLOXACIN HEMIHYDRATE [Concomitant]
     Active Substance: LEVOFLOXACIN
     Route: 065
     Dates: start: 20150709
  22. LOXOPROFEN SODIUM HYDRATE [Concomitant]
     Active Substance: LOXOPROFEN SODIUM DIHYDRATE
     Route: 065
     Dates: start: 20140515, end: 20140613
  23. AZULENE SULFONATE SODIUM - SODIUM BICARBONATE [Concomitant]
     Indication: ADVERSE EVENT
     Route: 065
     Dates: start: 20141204, end: 20141210
  24. DEXAMETHASONE. [Suspect]
     Active Substance: DEXAMETHASONE
     Route: 041
     Dates: start: 20111222
  25. HEPARIN [Concomitant]
     Active Substance: HEPARIN SODIUM
     Indication: PRODUCT USED FOR UNKNOWN INDICATION
     Route: 065
     Dates: start: 20111220, end: 20120331
  26. SODIUM PICOSULFATE HYDRATE [Concomitant]
     Route: 065
     Dates: start: 20120106, end: 20120525
  27. ASPIRIN. [Concomitant]
     Active Substance: ASPIRIN
     Route: 065
     Dates: start: 20130117, end: 20130606
  28. PL GRANULE [Concomitant]
     Route: 065
     Dates: start: 20131108, end: 20131121
  29. SENNOSIDE [Concomitant]
     Active Substance: SENNOSIDES
     Route: 065
     Dates: start: 20121215, end: 20121215
  30. SENNOSIDE [Concomitant]
     Active Substance: SENNOSIDES
     Route: 065
     Dates: start: 20130613, end: 20130613
  31. LEVOFLOXACIN HEMIHYDRATE [Concomitant]
     Active Substance: LEVOFLOXACIN
     Indication: ADVERSE EVENT
     Route: 065
     Dates: start: 20130104, end: 20130116
  32. LEVOFLOXACIN HEMIHYDRATE [Concomitant]
     Active Substance: LEVOFLOXACIN
     Route: 065
     Dates: start: 20130822, end: 20130828
  33. KETOCONAZOLE. [Concomitant]
     Active Substance: KETOCONAZOLE
     Route: 065
     Dates: start: 20150512, end: 20150610
  34. KETOCONAZOLE. [Concomitant]
     Active Substance: KETOCONAZOLE
     Route: 065
     Dates: start: 20150701
  35. LOXOPROFEN SODIUM HYDRATE [Concomitant]
     Active Substance: LOXOPROFEN SODIUM DIHYDRATE
     Route: 065
     Dates: start: 20130829, end: 20130918
  36. ELOTUZUMAB [Suspect]
     Active Substance: ELOTUZUMAB
     Indication: PLASMA CELL MYELOMA
     Route: 041
     Dates: start: 20111222
  37. FELBINAC [Concomitant]
     Active Substance: FELBINAC
     Indication: PRODUCT USED FOR UNKNOWN INDICATION
     Route: 065
     Dates: start: 20111216, end: 20111216
  38. ACICLOVIR [Concomitant]
     Active Substance: ACYCLOVIR
     Indication: PRODUCT USED FOR UNKNOWN INDICATION
     Route: 065
     Dates: start: 20111222
  39. ASPIRIN. [Concomitant]
     Active Substance: ASPIRIN
     Indication: PRODUCT USED FOR UNKNOWN INDICATION
     Route: 065
     Dates: start: 20111122, end: 20121129
  40. PL GRANULE [Concomitant]
     Route: 065
     Dates: start: 20121101, end: 20121107
  41. PL GRANULE [Concomitant]
     Route: 065
     Dates: start: 20130822, end: 20130829
  42. L-CARBOCISTEINE [Concomitant]
     Active Substance: CARBOCYSTEINE
     Route: 065
     Dates: start: 20150521, end: 20150603
  43. BIOFERMIN-R [Concomitant]
     Route: 065
     Dates: start: 20130404, end: 20130411
  44. SENNOSIDE [Concomitant]
     Active Substance: SENNOSIDES
     Route: 065
     Dates: start: 20141211, end: 20141217
  45. VANCOMYCIN HYDROCHLORIDE. [Concomitant]
     Active Substance: VANCOMYCIN HYDROCHLORIDE
     Indication: PRODUCT USED FOR UNKNOWN INDICATION
     Route: 065
     Dates: start: 20130104, end: 20130107
  46. LIRANAFTATE [Concomitant]
     Route: 065
     Dates: start: 20130809, end: 20130810
  47. LOXOPROFEN SODIUM HYDRATE [Concomitant]
     Active Substance: LOXOPROFEN SODIUM DIHYDRATE
     Route: 065
     Dates: start: 20140923, end: 20140926
  48. AMBROXOL HYDROCHLORIDE [Concomitant]
     Active Substance: AMBROXOL HYDROCHLORIDE
     Indication: ADVERSE EVENT
     Route: 065
     Dates: start: 20140530, end: 20140605
  49. REVLIMID [Suspect]
     Active Substance: LENALIDOMIDE
     Indication: PLASMA CELL MYELOMA
     Route: 048
     Dates: start: 20111222
  50. LENADEX [Suspect]
     Active Substance: DEXAMETHASONE ACETATE
     Indication: PLASMA CELL MYELOMA
     Route: 048
     Dates: start: 20111222
  51. LENADEX [Suspect]
     Active Substance: DEXAMETHASONE ACETATE
     Route: 048
     Dates: start: 20111222
  52. DEXAMETHASONE. [Suspect]
     Active Substance: DEXAMETHASONE
     Indication: PLASMA CELL MYELOMA
     Route: 041
     Dates: start: 20111222
  53. SODIUM PICOSULFATE HYDRATE [Concomitant]
     Route: 065
     Dates: start: 20120601, end: 20130102
  54. ASPIRIN. [Concomitant]
     Active Substance: ASPIRIN
     Route: 065
     Dates: start: 20130615, end: 20140326
  55. PL GRANULE [Concomitant]
     Indication: PRODUCT USED FOR UNKNOWN INDICATION
     Route: 065
     Dates: start: 20120713, end: 20120724
  56. PL GRANULE [Concomitant]
     Route: 065
     Dates: start: 20140918, end: 20140923
  57. L-CARBOCISTEINE [Concomitant]
     Active Substance: CARBOCYSTEINE
     Indication: PRODUCT USED FOR UNKNOWN INDICATION
     Route: 065
     Dates: start: 20120913, end: 20120919
  58. V ROHTO [Concomitant]
     Indication: ADVERSE EVENT
     Route: 047
     Dates: start: 20130510, end: 20130912
  59. LOXOPROFEN SODIUM HYDRATE [Concomitant]
     Active Substance: LOXOPROFEN SODIUM DIHYDRATE
     Route: 065
     Dates: start: 20140925, end: 20140926
  60. MAGNESIUM OXIDE. [Concomitant]
     Active Substance: MAGNESIUM OXIDE
     Indication: ADVERSE EVENT
     Route: 065
     Dates: start: 20141211, end: 20141217
  61. SENNA LEAF [Concomitant]
     Active Substance: SENNA LEAF
     Route: 065
     Dates: start: 20130122, end: 20130329
  62. SODIUM PICOSULFATE HYDRATE [Concomitant]
     Indication: PRODUCT USED FOR UNKNOWN INDICATION
     Route: 065
     Dates: start: 20111230, end: 20130102
  63. ASPIRIN. [Concomitant]
     Active Substance: ASPIRIN
     Route: 065
     Dates: start: 20140402
  64. L-CARBOCISTEINE [Concomitant]
     Active Substance: CARBOCYSTEINE
     Route: 065
     Dates: start: 20140502, end: 20140508
  65. METOCLOPRAMIDE. [Concomitant]
     Active Substance: METOCLOPRAMIDE
     Route: 065
     Dates: start: 20121215, end: 20121215
  66. CEFEPIME [Concomitant]
     Active Substance: CEFEPIME HYDROCHLORIDE
     Indication: ADVERSE EVENT
     Route: 065
     Dates: start: 20130103, end: 20130107
  67. SOLITA-T NO 3 [Concomitant]
     Indication: ADVERSE EVENT
     Route: 065
     Dates: start: 20130402, end: 20130402
  68. LACTATED RINGERS [Concomitant]
     Active Substance: CALCIUM CHLORIDE\POTASSIUM CHLORIDE\SODIUM CHLORIDE\SODIUM LACTATE
     Indication: PNEUMONIA
     Route: 065
     Dates: start: 201501
  69. KETOCONAZOLE. [Concomitant]
     Active Substance: KETOCONAZOLE
     Indication: ADVERSE EVENT
     Route: 065
     Dates: start: 20140912, end: 20140921
  70. SODIUM PICOSULFATE HYDRATE [Concomitant]
     Route: 065
     Dates: start: 20130403, end: 20140327
  71. ASPIRIN. [Concomitant]
     Active Substance: ASPIRIN
     Route: 065
     Dates: start: 20121211, end: 20130103
  72. L-CARBOCISTEINE [Concomitant]
     Active Substance: CARBOCYSTEINE
     Route: 065
     Dates: start: 20150709
  73. SENNOSIDE [Concomitant]
     Active Substance: SENNOSIDES
     Indication: PRODUCT USED FOR UNKNOWN INDICATION
     Route: 065
     Dates: start: 20121206, end: 20121206
  74. LEVOFLOXACIN HEMIHYDRATE [Concomitant]
     Active Substance: LEVOFLOXACIN
     Route: 065
     Dates: start: 20140502, end: 20140506
  75. LEVOFLOXACIN HEMIHYDRATE [Concomitant]
     Active Substance: LEVOFLOXACIN
     Route: 065
     Dates: start: 20140919, end: 20140923
  76. LEVOFLOXACIN HEMIHYDRATE [Concomitant]
     Active Substance: LEVOFLOXACIN
     Route: 065
     Dates: start: 20150522, end: 20150528
  77. HERBAL NOS [Concomitant]
     Active Substance: HERBALS
     Indication: ADVERSE EVENT
     Route: 065
     Dates: start: 20130830, end: 20130906
  78. KETOCONAZOLE. [Concomitant]
     Active Substance: KETOCONAZOLE
     Route: 065
     Dates: start: 20150219, end: 20150501
  79. THIAMINE DISULFIDE PHOSPHATE PYRIDOXINE HYDROCHLORIDE CYANOCOBALAMINE [Concomitant]
     Indication: ADVERSE EVENT
     Route: 065
     Dates: start: 20130402, end: 20130402
  80. REVLIMID [Suspect]
     Active Substance: LENALIDOMIDE
     Route: 048
     Dates: start: 20121122
  81. SODIUM PICOSULFATE HYDRATE [Concomitant]
     Route: 065
     Dates: start: 20130122, end: 20130329
  82. L-CARBOCISTEINE [Concomitant]
     Active Substance: CARBOCYSTEINE
     Route: 065
     Dates: start: 20140522, end: 20140605
  83. L-CARBOCISTEINE [Concomitant]
     Active Substance: CARBOCYSTEINE
     Route: 065
     Dates: start: 20141204, end: 20141210
  84. BIOFERMIN-R [Concomitant]
     Indication: PRODUCT USED FOR UNKNOWN INDICATION
     Route: 065
     Dates: start: 20121101, end: 20121107
  85. LOXOPROFEN SODIUM HYDRATE [Concomitant]
     Active Substance: LOXOPROFEN SODIUM DIHYDRATE
     Indication: ADVERSE EVENT
     Route: 065
     Dates: start: 20130117, end: 20130201
  86. LOXOPROFEN SODIUM HYDRATE [Concomitant]
     Active Substance: LOXOPROFEN SODIUM DIHYDRATE
     Route: 065
     Dates: start: 20140623

REACTIONS (2)
  - Pneumonia pneumococcal [Recovered/Resolved]
  - Adenocarcinoma of colon [Recovered/Resolved]

NARRATIVE: CASE EVENT DATE: 20121212
